FAERS Safety Report 8787284 (Version 1)
Quarter: 2012Q4

REPORT INFORMATION
  Report Type: 
  Country: ES (occurrence: ES)
  Receive Date: 20120914
  Receipt Date: 20120914
  Transmission Date: 20130627
  Serious: Yes (Other)
  Sender: FDA-Public Use
  Company Number: ES-AMGEN-ESPSP2012057598

PATIENT
  Sex: Female

DRUGS (3)
  1. ENBREL [Suspect]
     Indication: PRODUCT USED FOR UNKNOWN INDICATION
     Dosage: 50 mg, weekly
     Dates: start: 2010
  2. NAPROXEN [Concomitant]
     Dosage: UNK UNK, UNK
  3. URBASON                            /00049601/ [Concomitant]
     Dosage: UNK UNK, UNK

REACTIONS (2)
  - Eye disorder [Unknown]
  - Blood urine present [Unknown]
